FAERS Safety Report 21797170 (Version 1)
Quarter: 2022Q4

REPORT INFORMATION
  Report Type: Spontaneous
  Country: US (occurrence: US)
  Receive Date: 20221230
  Receipt Date: 20221230
  Transmission Date: 20230113
  Serious: No
  Sender: FDA-Public Use
  Company Number: US-BIOVITRUM-2022US15598

PATIENT
  Sex: Female
  Weight: 6 kg

DRUGS (2)
  1. SYNAGIS [Suspect]
     Active Substance: PALIVIZUMAB
     Indication: Pulmonary malformation
  2. D-VI-SOL [Concomitant]
     Dosage: 10(400)/ML DROPS

REACTIONS (1)
  - Fungal infection [Unknown]
